FAERS Safety Report 6283578-5 (Version None)
Quarter: 2009Q3

REPORT INFORMATION
  Report Type: 
  Country: None (occurrence: None)
  Receive Date: 20090724
  Receipt Date: 20090424
  Transmission Date: 20100115
  Serious: No
  Sender: FDA-Public Use
  Company Number: US-ALEXION-A200900351

PATIENT
  Sex: Female

DRUGS (7)
  1. SOLIRIS [Suspect]
     Indication: PAROXYSMAL NOCTURNAL HAEMOGLOBINURIA
     Dosage: 600 MG, QW
     Route: 042
     Dates: start: 20090418
  2. SOLIRIS [Suspect]
     Dosage: UNK
     Route: 042
  3. VITAMINS NOS [Concomitant]
     Dosage: UNK
     Route: 048
  4. IRON [Concomitant]
     Dosage: UNK
     Route: 048
  5. TYLENOL (CAPLET) [Concomitant]
     Indication: PREMEDICATION
     Dosage: UNK, EACH IV
     Route: 048
     Dates: start: 20090418
  6. FOLIC ACID [Concomitant]
     Indication: SUPPLEMENTATION THERAPY
     Dosage: 1 MG, QD
     Route: 048
  7. BENADRYL [Concomitant]
     Indication: PREMEDICATION
     Dosage: UNK, EACH IV
     Route: 048
     Dates: start: 20090418

REACTIONS (1)
  - HYPERSENSITIVITY [None]
